FAERS Safety Report 9680914 (Version 2)
Quarter: 2013Q4

REPORT INFORMATION
  Report Type: Spontaneous
  Country: US (occurrence: US)
  Receive Date: 20131111
  Receipt Date: 20131120
  Transmission Date: 20140711
  Serious: No
  Sender: FDA-Public Use
  Company Number: US-PFIZER INC-2013319862

PATIENT
  Age: 63 Year
  Sex: Male

DRUGS (8)
  1. NEURONTIN [Suspect]
     Dosage: UNK
  2. NIFEDIPINE [Suspect]
     Dosage: UNK
  3. LISINOPRIL [Suspect]
     Dosage: UNK
  4. TEMAZEPAM [Suspect]
     Dosage: UNK
  5. IBUPROFEN [Suspect]
     Dosage: UNK
  6. LIDODERM [Suspect]
     Dosage: UNK
  7. AMBIEN [Suspect]
     Dosage: UNK
  8. HYDROCODONE [Suspect]
     Dosage: 10MG 12 HOURLY AS NEEDED

REACTIONS (1)
  - Drug hypersensitivity [Unknown]
